FAERS Safety Report 10016093 (Version 1)
Quarter: 2014Q1

REPORT INFORMATION
  Report Type: Spontaneous
  Country: US (occurrence: US)
  Receive Date: 20140317
  Receipt Date: 20140317
  Transmission Date: 20141002
  Serious: Yes (Hospitalization, Other)
  Sender: FDA-Public Use
  Company Number: US-TEVA-468387USA

PATIENT
  Age: 53 Year
  Sex: Male

DRUGS (6)
  1. AMOXICILLIN W/CLAVULANIC ACID [Suspect]
     Indication: TOOTH ABSCESS
     Dosage: 500/125MG TWICE DAILY
     Route: 065
  2. WARFARIN [Interacting]
     Indication: ANTICOAGULANT THERAPY
     Dosage: 2MG ON M/W/F AND 1MG ON T/T/S/S
     Route: 048
  3. SALBUTAMOL [Concomitant]
     Dosage: AS NEEDED
     Route: 055
  4. TRAZODONE [Concomitant]
     Dosage: AT BEDTIME
     Route: 048
  5. CHLORDIAZEPOXIDE [Concomitant]
     Dosage: 10MG 1-3 TIMES A DAY
     Route: 048
  6. VICODIN [Concomitant]
     Indication: PAIN
     Dosage: 7.5/750 AS NEEDED
     Route: 048

REACTIONS (2)
  - Haemorrhage [Recovered/Resolved]
  - Drug interaction [Recovered/Resolved]
